FAERS Safety Report 9515660 (Version 3)
Quarter: 2013Q3

REPORT INFORMATION
  Report Type: Report from Study
  Country: NZ (occurrence: NZ)
  Receive Date: 20130911
  Receipt Date: 20130928
  Transmission Date: 20140515
  Serious: Yes (Hospitalization)
  Sender: FDA-Public Use
  Company Number: NZ-ROCHE-1271861

PATIENT
  Age: 56 Year
  Sex: Male
  Weight: 66 kg

DRUGS (13)
  1. REBETOL [Suspect]
     Dosage: 2 DF, QPM (TILL 10/M,AY/2013 AND LATER 1 DF QAM TILL 30/MAY/2013
     Route: 048
     Dates: start: 20130503, end: 20130530
  2. REBETOL [Suspect]
     Dosage: 1 DF, QPM
     Route: 048
     Dates: start: 20130511, end: 20130626
  3. REBETOL [Suspect]
     Dosage: 1 CAPSULE, QAM
     Route: 048
     Dates: start: 20130531, end: 20130626
  4. MK-3034 [Suspect]
     Indication: CHRONIC HEPATITIS C
     Dosage: 4 CAPSULES IN MORNING, AFTER NOON AND EVENING
     Route: 048
     Dates: start: 20130503
  5. CITALOPRAM [Concomitant]
     Route: 065
     Dates: end: 20100301
  6. ACETAMINOPHEN [Concomitant]
     Route: 065
     Dates: start: 20130404
  7. ZOPICLONE [Concomitant]
     Route: 065
     Dates: start: 20130404
  8. METOCLOPRAMIDE [Concomitant]
     Route: 065
     Dates: start: 20130404
  9. PEG-INTERFERON ALFA 2A [Suspect]
     Indication: CHRONIC HEPATITIS C
     Route: 058
     Dates: start: 20130405, end: 20130412
  10. PEG-INTERFERON ALFA 2A [Suspect]
     Route: 058
     Dates: start: 20130419, end: 20130524
  11. PEG-INTERFERON ALFA 2A [Suspect]
     Route: 058
     Dates: start: 20130531
  12. REBETOL [Suspect]
     Indication: CHRONIC HEPATITIS C
     Dosage: QD
     Route: 048
     Dates: start: 20130405, end: 20130405
  13. REBETOL [Suspect]
     Dosage: 5 CAPS (PM 3 CAPS, AM 2 CAPS) QD
     Route: 048
     Dates: start: 20130406, end: 20130502

REACTIONS (3)
  - Pyrexia [Recovered/Resolved]
  - Tooth infection [Recovered/Resolved]
  - Oral pain [Recovering/Resolving]
